FAERS Safety Report 4701920-0 (Version None)
Quarter: 2005Q2

REPORT INFORMATION
  Report Type: 
  Country: None (occurrence: None)
  Receive Date: 20050628
  Receipt Date: 20050621
  Transmission Date: 20051028
  Serious: Yes (Hospitalization, Other)
  Sender: FDA-Public Use
  Company Number: GB-MERCK-0506GBR00164

PATIENT
  Age: 84 Year
  Sex: Female

DRUGS (5)
  1. PERINDOPRIL [Concomitant]
     Indication: GOUT
     Route: 048
     Dates: end: 20050501
  2. ZOCOR [Suspect]
     Indication: BLOOD CHOLESTEROL INCREASED
     Route: 048
     Dates: start: 20040801, end: 20050501
  3. FUROSEMIDE [Concomitant]
     Route: 048
     Dates: end: 20050501
  4. PRAZOSIN [Concomitant]
     Indication: CORONARY ARTERY DISEASE
     Route: 048
     Dates: end: 20050501
  5. ALLOPURINOL [Concomitant]
     Route: 048
     Dates: end: 20050501

REACTIONS (3)
  - HEPATOCELLULAR DAMAGE [None]
  - MUSCLE INJURY [None]
  - RENAL DISORDER [None]
